FAERS Safety Report 9341827 (Version 1)
Quarter: 2013Q2

REPORT INFORMATION
  Report Type: Spontaneous
  Country: US (occurrence: US)
  Receive Date: 20130611
  Receipt Date: 20130611
  Transmission Date: 20140414
  Serious: No
  Sender: FDA-Public Use
  Company Number: US-TEVA-408965USA

PATIENT
  Age: 42 Year
  Sex: Female
  Weight: 74.91 kg

DRUGS (2)
  1. COPAXONE [Suspect]
     Indication: MULTIPLE SCLEROSIS
     Dates: start: 201004
  2. KLONOPIN [Concomitant]
     Indication: SLEEP DISORDER

REACTIONS (1)
  - Lymphadenopathy [Not Recovered/Not Resolved]
